FAERS Safety Report 22296487 (Version 3)
Quarter: 2023Q2

REPORT INFORMATION
  Report Type: Spontaneous
  Country: DE (occurrence: DE)
  Receive Date: 20230508
  Receipt Date: 20230613
  Transmission Date: 20230722
  Serious: Yes (Hospitalization, Other)
  Sender: FDA-Public Use
  Company Number: DE-BoehringerIngelheim-2023-BI-236122

PATIENT
  Age: 82 Year
  Sex: Male
  Weight: 100 kg

DRUGS (24)
  1. JARDIANCE [Suspect]
     Active Substance: EMPAGLIFLOZIN
     Indication: Type 2 diabetes mellitus
     Dosage: 1-0-0-0
     Route: 048
     Dates: start: 20220815, end: 20230327
  2. JARDIANCE [Suspect]
     Active Substance: EMPAGLIFLOZIN
     Indication: Cardiac failure
     Dosage: 1-0-0-0
     Route: 048
     Dates: start: 202304, end: 202304
  3. LEVEMIR [Concomitant]
     Active Substance: INSULIN DETEMIR
     Indication: Type 2 diabetes mellitus
     Dosage: 16-0-12-0?AT AN INTERVAL OF 12 HOURS
  4. LEVEMIR [Concomitant]
     Active Substance: INSULIN DETEMIR
     Dosage: 10-0-0 IU
  5. Metformin 500 1A-Pharma [Concomitant]
     Indication: Type 2 diabetes mellitus
     Dates: end: 20230406
  6. Macrogol TAD [Concomitant]
     Indication: Product used for unknown indication
  7. HCT AAA 12.5 mg [Concomitant]
     Indication: Cardiac failure
     Route: 048
     Dates: start: 20230315
  8. Pipamperon 40 1A-Pharma [Concomitant]
     Indication: Product used for unknown indication
  9. Sertralin Bluefish 50 mg [Concomitant]
     Indication: Product used for unknown indication
     Dosage: 0.5-0-0-0
  10. Tavor 0.5 [Concomitant]
     Indication: Anxiety disorder
     Dosage: 1X1/DAY AS NECESSARY (ANXIETY, DYSPNEA), MAXIMAL 2X1/DAY
  11. Tavor 0.5 [Concomitant]
     Indication: Dyspnoea
  12. Tamsulosin 1A Pharma 0.4 mg [Concomitant]
     Indication: Product used for unknown indication
     Dates: start: 20211216
  13. Metamizol ABZ 500 mg Tab [Concomitant]
     Indication: Pain
     Dosage: 4X1/DAY ONLY AS NECESSARY (PAIN)
  14. Eliquis 5 mg Filmtabletten [Concomitant]
     Indication: Atrial fibrillation
     Dates: start: 20200417
  15. Pantoprazol 20 mg MIC LAB [Concomitant]
     Indication: Prophylaxis
  16. Pantoprazol 20 mg MIC LAB [Concomitant]
     Route: 048
  17. NOVORAPID [Concomitant]
     Active Substance: INSULIN ASPART
     Indication: Type 2 diabetes mellitus
     Dosage: BLOOD GLUCOSE: 240-280: 4 IU?BLOOD GLUCOSE: 281-320: 5 IU?BLOOD GLUCOSE: 231-360: 6 IU?BLOOD GLUCOSE
  18. NOVORAPID [Concomitant]
     Active Substance: INSULIN ASPART
     Dosage: 12-2-3 IU AND CORRECTION IN 30 STEPS IF ABOVE 211 MG/DL.
     Dates: start: 20230406
  19. Torasemid 50 mg [Concomitant]
     Indication: Cardiac failure
     Route: 048
  20. Hydromorphon 2 mg [Concomitant]
     Indication: Pain
     Route: 048
  21. Atorvastatin Zentiva 40 mg [Concomitant]
     Indication: Product used for unknown indication
  22. Metformin LICH 500 mg FTA [Concomitant]
     Indication: Product used for unknown indication
     Dates: start: 20200218
  23. Torasemid 1A Pharma 20 mg [Concomitant]
     Indication: Product used for unknown indication
     Dates: start: 20151110
  24. Spironolacton Accord 50 mg [Concomitant]
     Indication: Product used for unknown indication
     Dates: start: 20220603

REACTIONS (6)
  - Diabetes mellitus [Not Recovered/Not Resolved]
  - Urinary tract infection [Recovered/Resolved]
  - Urosepsis [Recovered/Resolved]
  - Cardiac failure [Recovered/Resolved]
  - Pneumonia [Recovering/Resolving]
  - Urinary retention [Recovering/Resolving]

NARRATIVE: CASE EVENT DATE: 20230117
